FAERS Safety Report 4630885-5 (Version None)
Quarter: 2005Q2

REPORT INFORMATION
  Report Type: 
  Country: None (occurrence: None)
  Receive Date: 20050404
  Receipt Date: 20050404
  Transmission Date: 20051028
  Serious: Yes (Other)
  Sender: FDA-Public Use
  Company Number: None

PATIENT
  Age: 33 Year
  Sex: Male
  Weight: 73.4827 kg

DRUGS (3)
  1. PAXIL CR [Suspect]
     Indication: GENERALISED ANXIETY DISORDER
     Dosage: 12.5 MG
  2. CRESTOR [Concomitant]
  3. PROTONIX [Concomitant]

REACTIONS (5)
  - AGITATION [None]
  - FEELING ABNORMAL [None]
  - MORBID THOUGHTS [None]
  - RESTLESSNESS [None]
  - THINKING ABNORMAL [None]
